FAERS Safety Report 4896929-0 (Version None)
Quarter: 2006Q1

REPORT INFORMATION
  Report Type: 
  Country: None (occurrence: None)
  Receive Date: 20060127
  Receipt Date: 20040519
  Transmission Date: 20060701
  Serious: Yes (Death, Life-Threatening, Hospitalization)
  Sender: FDA-Public Use
  Company Number: 2004033471

PATIENT
  Age: 79 Year
  Sex: Male

DRUGS (10)
  1. LIPITOR [Suspect]
     Indication: HYPERCHOLESTEROLAEMIA
     Dosage: 10 MG (1 IN 1 D), ORAL
     Route: 048
     Dates: start: 20020702, end: 20030915
  2. LASIX [Suspect]
     Indication: CARDIAC FAILURE
     Dosage: ORAL
     Route: 048
     Dates: start: 20020702, end: 20030915
  3. METILDIGOXIN     (METILDIGOXIN) [Suspect]
     Indication: CARDIAC FAILURE
     Dosage: ORAL
     Route: 048
     Dates: start: 20020702, end: 20030915
  4. UNICON (THEOPHYLLINE) [Suspect]
     Indication: ASTHMA
     Dosage: ORAL
     Route: 048
     Dates: start: 20020702, end: 20030915
  5. BUFFERIN [Concomitant]
  6. WARFARIN (WARFARIN) [Concomitant]
  7. TICLOPIDINE HCL [Concomitant]
  8. ADALAT [Concomitant]
  9. SYMMETREL [Concomitant]
  10. PURSENNID (SENNA LEAF) [Concomitant]

REACTIONS (6)
  - BLOOD UREA INCREASED [None]
  - BLOOD URIC ACID INCREASED [None]
  - DECREASED APPETITE [None]
  - DYSPHAGIA [None]
  - GENERAL PHYSICAL HEALTH DETERIORATION [None]
  - PNEUMONIA [None]
